FAERS Safety Report 4921983-7 (Version None)
Quarter: 2006Q1

REPORT INFORMATION
  Report Type: 
  Country: None (occurrence: None)
  Receive Date: 20060223
  Receipt Date: 20060223
  Transmission Date: 20060701
  Serious: Yes (Hospitalization)
  Sender: FDA-Public Use
  Company Number: None

PATIENT
  Age: 87 Year
  Sex: Male

DRUGS (11)
  1. COUMADIN [Suspect]
     Dosage: 7.5 MG Q DAY
  2. ZAROXOLYN [Concomitant]
  3. LASIX [Concomitant]
  4. IMDUR [Concomitant]
  5. ALLOPURINOL [Concomitant]
  6. COUMADIN [Concomitant]
  7. AMIDARONE [Concomitant]
  8. COREG [Concomitant]
  9. ASPIRIN [Concomitant]
  10. M.V.I. [Concomitant]
  11. LACTULOSE [Concomitant]

REACTIONS (1)
  - HAEMATOCHEZIA [None]
